FAERS Safety Report 23290851 (Version 1)
Quarter: 2023Q4

REPORT INFORMATION
  Report Type: Spontaneous
  Country: US (occurrence: US)
  Receive Date: 20231213
  Receipt Date: 20231213
  Transmission Date: 20240110
  Serious: No
  Sender: FDA-Public Use
  Company Number: US-ALVOGEN-2023089169

PATIENT
  Sex: Female

DRUGS (1)
  1. FENTANYL [Suspect]
     Active Substance: FENTANYL\FENTANYL CITRATE
     Indication: Complex regional pain syndrome
     Dosage: STRENGTH: 25 MCG?EXPIRATION DATE: MAY-2025. ?S/N0 35177219893 ?GT IN 00347781424473

REACTIONS (6)
  - Inadequate analgesia [Unknown]
  - Dizziness [Unknown]
  - Fatigue [Unknown]
  - Disturbance in attention [Unknown]
  - Decreased appetite [Unknown]
  - Adverse event [Unknown]
